FAERS Safety Report 4300446-6 (Version None)
Quarter: 2004Q1

REPORT INFORMATION
  Report Type: 
  Country: None (occurrence: None)
  Receive Date: 20040218
  Receipt Date: 20040202
  Transmission Date: 20041129
  Serious: Yes (Other)
  Sender: FDA-Public Use
  Company Number: USA040258206

PATIENT
  Age: 56 Year
  Sex: Female
  Weight: 59 kg

DRUGS (3)
  1. HUMALOG [Suspect]
     Indication: DIABETES MELLITUS
     Dates: start: 19950101
  2. NPH ILETIN II (PORK) [Suspect]
     Indication: DIABETES MELLITUS
     Dosage: 16.25 U/AT BEDTIME
     Dates: start: 19770101
  3. REGULAR INSULIN [Suspect]
     Indication: DIABETES MELLITUS
     Dates: start: 19770101

REACTIONS (4)
  - BLOOD GLUCOSE FLUCTUATION [None]
  - COMA [None]
  - LOCAL SWELLING [None]
  - SKIN DISCOLOURATION [None]
